FAERS Safety Report 25062527 (Version 2)
Quarter: 2025Q2

REPORT INFORMATION
  Report Type: Spontaneous
  Country: US (occurrence: None)
  Receive Date: 20250311
  Receipt Date: 20250509
  Transmission Date: 20250717
  Serious: No
  Sender: Alvotech
  Company Number: None

PATIENT
  Sex: Male

DRUGS (1)
  1. SIMLANDI [Suspect]
     Active Substance: ADALIMUMAB-RYVK
     Indication: Hidradenitis
     Route: 065

REACTIONS (2)
  - Psoriasis [Unknown]
  - Drug ineffective [Unknown]
